FAERS Safety Report 9852617 (Version 1)
Quarter: 2014Q1

REPORT INFORMATION
  Report Type: Spontaneous
  Country: US (occurrence: US)
  Receive Date: 20140129
  Receipt Date: 20140129
  Transmission Date: 20141002
  Serious: No
  Sender: FDA-Public Use
  Company Number: US-GLAXOSMITHKLINE-A1037843A

PATIENT
  Age: 65 Year
  Sex: Male

DRUGS (4)
  1. MEPRON [Suspect]
     Indication: PRODUCT USED FOR UNKNOWN INDICATION
     Dosage: 1TSP TWICE PER DAY
     Route: 048
     Dates: start: 20130813
  2. WARFARIN [Concomitant]
  3. OMEPRAZOLE [Concomitant]
  4. DILTIAZEM [Concomitant]

REACTIONS (2)
  - Overdose [Unknown]
  - Product quality issue [Unknown]
